FAERS Safety Report 6211443-8 (Version None)
Quarter: 2009Q2

REPORT INFORMATION
  Report Type: 
  Country: None (occurrence: None)
  Receive Date: 20090528
  Receipt Date: 20090520
  Transmission Date: 20091009
  Serious: Yes (Other)
  Sender: FDA-Public Use
  Company Number: CHPA2009US12106

PATIENT
  Age: 52 Year
  Sex: Female

DRUGS (1)
  1. HYOSCINE HBR HYT [Suspect]
     Dosage: 1.5 MG
     Dates: start: 20090514, end: 20090517

REACTIONS (5)
  - AGEUSIA [None]
  - DRY MOUTH [None]
  - DRY THROAT [None]
  - DYSGEUSIA [None]
  - FEELING ABNORMAL [None]
